FAERS Safety Report 22217013 (Version 2)
Quarter: 2023Q2

REPORT INFORMATION
  Report Type: Report from Study
  Country: US (occurrence: US)
  Receive Date: 20230417
  Receipt Date: 20230517
  Transmission Date: 20230721
  Serious: Yes (Hospitalization, Other)
  Sender: FDA-Public Use
  Company Number: US-GILEAD-2023-0624438

PATIENT
  Age: 80 Year
  Sex: Male
  Weight: 60.2 kg

DRUGS (11)
  1. IDELALISIB [Suspect]
     Active Substance: IDELALISIB
     Indication: Chronic lymphocytic leukaemia
     Dosage: 150 MG, BID
     Route: 048
     Dates: start: 20221221, end: 20230328
  2. RITUXIMAB [Suspect]
     Active Substance: RITUXIMAB
     Indication: Chronic lymphocytic leukaemia
     Dosage: 500 MG, CYCLICAL
     Route: 042
     Dates: start: 20221221
  3. RITUXIMAB [Suspect]
     Active Substance: RITUXIMAB
     Dosage: 500 MG, CYCLICAL
     Route: 042
     Dates: start: 20230104, end: 20230315
  4. ZOFRAN [Concomitant]
     Active Substance: ONDANSETRON HYDROCHLORIDE
  5. ALLOPURINOL [Concomitant]
     Active Substance: ALLOPURINOL
  6. ELIQUIS [Concomitant]
     Active Substance: APIXABAN
  7. BACTRIM [Concomitant]
     Active Substance: SULFAMETHOXAZOLE\TRIMETHOPRIM
  8. VALACYCLOVIR [Concomitant]
     Active Substance: VALACYCLOVIR HYDROCHLORIDE
     Dosage: DECREASED 500MG TO EVERY 48 HOURS
  9. DAPSONE [Concomitant]
     Active Substance: DAPSONE
  10. FEBUXOSTAT [Concomitant]
     Active Substance: FEBUXOSTAT
  11. SEVELAMER [Concomitant]
     Active Substance: SEVELAMER

REACTIONS (2)
  - Renal impairment [Recovered/Resolved]
  - Abdominal pain [Recovering/Resolving]

NARRATIVE: CASE EVENT DATE: 20230331
